FAERS Safety Report 7625900-0 (Version None)
Quarter: 2011Q3

REPORT INFORMATION
  Report Type: 
  Country: None (occurrence: None)
  Receive Date: 20110721
  Receipt Date: 20110721
  Transmission Date: 20111222
  Serious: Yes (Other)
  Sender: FDA-Public Use
  Company Number: None

PATIENT
  Age: 21 Year
  Sex: Female
  Weight: 49.895 kg

DRUGS (1)
  1. VICKS FORMULA 44 [Suspect]

REACTIONS (6)
  - DIZZINESS [None]
  - RESPIRATORY DEPRESSION [None]
  - MENTAL STATUS CHANGES [None]
  - INCORRECT DOSE ADMINISTERED [None]
  - PRODUCT LABEL ISSUE [None]
  - HALLUCINATION [None]
